FAERS Safety Report 4262971-6 (Version None)
Quarter: 2004Q1

REPORT INFORMATION
  Report Type: 
  Country: None (occurrence: None)
  Receive Date: 20040102
  Receipt Date: 20040102
  Transmission Date: 20041129
  Serious: Yes (Death)
  Sender: FDA-Public Use
  Company Number: None

PATIENT
  Age: 28 Year
  Sex: Female

DRUGS (6)
  1. GEODON [Suspect]
     Indication: SCHIZOPHRENIA, PARANOID TYPE
     Dosage: 120 MG BID PO
     Route: 048
     Dates: start: 20030818, end: 20030923
  2. SYNTHROID [Concomitant]
  3. GEMFIBROZIL [Concomitant]
  4. POTASSIUM [Concomitant]
  5. TOPIRMATE [Concomitant]
  6. LORATADINE [Concomitant]

REACTIONS (5)
  - CARDIAC ARREST [None]
  - CARDIOMEGALY [None]
  - MITRAL VALVE PROLAPSE [None]
  - PULMONARY OEDEMA [None]
  - VENTRICULAR HYPERTROPHY [None]
